FAERS Safety Report 18621388 (Version 1)
Quarter: 2020Q4

REPORT INFORMATION
  Report Type: Spontaneous
  Country: FR (occurrence: FR)
  Receive Date: 20201216
  Receipt Date: 20201216
  Transmission Date: 20210114
  Serious: Yes (Hospitalization)
  Sender: FDA-Public Use
  Company Number: FR-ACCORD-211092

PATIENT
  Age: 26 Year
  Sex: Male

DRUGS (2)
  1. SERESTA [Suspect]
     Active Substance: OXAZEPAM
     Route: 048
     Dates: start: 20201106, end: 20201106
  2. ARIPIPRAZOLE. [Suspect]
     Active Substance: ARIPIPRAZOLE
     Route: 048
     Dates: start: 20201106, end: 20201106

REACTIONS (3)
  - Somnolence [Unknown]
  - Toxicity to various agents [Unknown]
  - Atonic seizures [Recovered/Resolved]

NARRATIVE: CASE EVENT DATE: 20201106
